FAERS Safety Report 7348977-9 (Version None)
Quarter: 2011Q1

REPORT INFORMATION
  Report Type: 
  Country: None (occurrence: None)
  Receive Date: 20110303
  Receipt Date: 20110222
  Transmission Date: 20110831
  Serious: Yes (Other)
  Sender: FDA-Public Use
  Company Number: 027996

PATIENT
  Age: 40 Year
  Sex: Female

DRUGS (3)
  1. KEPPRA [Suspect]
     Dosage: ORAL
     Route: 048
  2. LACOSAMIDE [Suspect]
     Dosage: 150 MG ORAL
     Route: 048
  3. TOPIRAMATE [Concomitant]

REACTIONS (2)
  - SOMNOLENCE [None]
  - PERSECUTORY DELUSION [None]
